FAERS Safety Report 17413700 (Version 5)
Quarter: 2020Q4

REPORT INFORMATION
  Report Type: Spontaneous
  Country: US (occurrence: US)
  Receive Date: 20200213
  Receipt Date: 20201015
  Transmission Date: 20210113
  Serious: Yes (Hospitalization)
  Sender: FDA-Public Use
  Company Number: US-PFIZER INC-2012175487

PATIENT
  Age: 69 Year
  Sex: Female
  Weight: 60.05 kg

DRUGS (35)
  1. ATIVAN [Concomitant]
     Active Substance: LORAZEPAM
     Indication: SLEEP DISORDER
  2. BUSPAR [Concomitant]
     Active Substance: BUSPIRONE HYDROCHLORIDE
     Dosage: 15 MG, 2X/DAY
     Route: 048
  3. CALCIUM MAGNESIUM + VITAMIN D3 [Concomitant]
     Dosage: 2 DF, 2X/DAY
     Route: 048
  4. LORAZEPAM. [Concomitant]
     Active Substance: LORAZEPAM
     Indication: ANXIETY
     Dosage: 0.5 MG, 2X/DAY
  5. ABILIFY [Concomitant]
     Active Substance: ARIPIPRAZOLE
     Dosage: 10 MG, 1X/DAY
  6. SYNTHROID [Concomitant]
     Active Substance: LEVOTHYROXINE SODIUM
     Dosage: 100 UG, DAILY
     Route: 048
  7. LITHIUM CARBONATE. [Concomitant]
     Active Substance: LITHIUM CARBONATE
     Dosage: 300 MG, 2X/DAY
  8. DILANTIN [Suspect]
     Active Substance: PHENYTOIN
     Dosage: 30 MG, 1X/DAY
  9. DILANTIN [Suspect]
     Active Substance: PHENYTOIN
     Dosage: 200 MG, 1X/DAY (DAILY AT BEDTIME)
     Route: 048
     Dates: start: 20190702
  10. DILANTIN [Suspect]
     Active Substance: PHENYTOIN
     Dosage: 100 MG, 1X/DAY (EVERY MORNING)
     Route: 048
     Dates: start: 20190702
  11. LEVOTHROID [Concomitant]
     Active Substance: LEVOTHYROXINE SODIUM
     Dosage: 100 UG, DAILY
     Route: 048
  12. OMEPRAZOL [Concomitant]
     Active Substance: OMEPRAZOLE
     Dosage: 40 MG, DAILY
  13. SENOKOT-S [Concomitant]
     Active Substance: DOCUSATE SODIUM\SENNOSIDES
     Dosage: UNK 2X/DAY (DOCUSATE SODIUM: 50MG, SENNA ALEXANDRINA: 8.6MG; 1IN AM AND Q1 IN PM, 2 IN 9AM, 2 AT 9PM
     Route: 048
  14. DILANTIN [Suspect]
     Active Substance: PHENYTOIN
     Indication: SEIZURE
     Dosage: 200 MG, 2X/DAY (2 CAPS 100MG AM, 2 CAPS 100 MG PM)
     Route: 048
     Dates: start: 1990
  15. BUSPIRONE HCL [Concomitant]
     Active Substance: BUSPIRONE HYDROCHLORIDE
     Indication: ANXIETY
     Dosage: 5 MG, 3X/DAY
  16. PREMARIN [Concomitant]
     Active Substance: ESTROGENS, CONJUGATED
     Dosage: UNK
  17. VITAMIN E [Concomitant]
     Active Substance: .ALPHA.-TOCOPHEROL
     Dosage: 400 IU, DAILY
     Route: 048
  18. ARTIFICIAL TEARS [HYPROMELLOSE] [Concomitant]
     Dosage: UNK (1 DROP INTO BOTH EYES AS NEEDED)
  19. MIRALAX [Concomitant]
     Active Substance: POLYETHYLENE GLYCOL 3350
     Dosage: UNK, 1X/DAY (TAKE IN AM)
  20. NEOMYCIN AND POLYMYXIN B SULF + DEXAMETH [Concomitant]
     Active Substance: DEXAMETHASONE\NEOMYCIN SULFATE\POLYMYXIN B SULFATE
     Dosage: UNK
     Dates: end: 201906
  21. ESTRACE [Concomitant]
     Active Substance: ESTRADIOL
     Dosage: 2 G, DAILY
     Route: 067
  22. LITHIUM CARBONATE. [Concomitant]
     Active Substance: LITHIUM CARBONATE
     Dosage: 150 MG, 2X/DAY
  23. ATIVAN [Concomitant]
     Active Substance: LORAZEPAM
     Indication: ANXIETY
     Dosage: UNK, AS NEEDED (0.5 MG BY MOUTH, TAKE 1-2 BY MOUTH THREE TIMES A DAY AS NEEDED)
     Route: 048
  24. ABILIFY [Concomitant]
     Active Substance: ARIPIPRAZOLE
     Dosage: 10 MG, DAILY (1 IN AM)
     Route: 048
  25. BUSPIRONE HCL [Concomitant]
     Active Substance: BUSPIRONE HYDROCHLORIDE
     Dosage: 15 MG, DAILY
  26. CLARITIN [Concomitant]
     Active Substance: LORATADINE
     Dosage: 10 MG, 1X/DAY
     Route: 048
  27. NEOMYCIN AND POLYMYXIN B SULF + DEXAMETH [Concomitant]
     Active Substance: DEXAMETHASONE\NEOMYCIN SULFATE\POLYMYXIN B SULFATE
     Indication: INFECTION
     Dosage: UNK, 1X/DAY (DEXAMETHASONE: 0.1, NEOMYCIN SULFATE: 3.5, POLYMYXIN B SULFATE: 10,000; 1-2 DROP EYELID
  28. SENOKOT-S [Concomitant]
     Active Substance: DOCUSATE SODIUM\SENNOSIDES
     Dosage: 120 MG, 2X/DAY ; (2 IN AM 60MG 2 AT NIGHT 60MG)
  29. ZYRTEC [Concomitant]
     Active Substance: CETIRIZINE HYDROCHLORIDE
     Dosage: 10 MG, DAILY (IN THE EVENING)
     Route: 048
  30. ZYRTEC [Concomitant]
     Active Substance: CETIRIZINE HYDROCHLORIDE
     Dosage: 10 MG, 1X/DAY
  31. DILANTIN [Suspect]
     Active Substance: PHENYTOIN
     Dosage: 100 MG, DAILY
  32. CALCIUM MAGNESIUM + VITAMIN D3 [Concomitant]
     Dosage: 2000 IU
  33. LITHOBID [Concomitant]
     Active Substance: LITHIUM CARBONATE
     Dosage: 300 MG, 2X/DAY
     Route: 048
  34. LITHOBID [Concomitant]
     Active Substance: LITHIUM CARBONATE
     Dosage: 150 UNK
  35. TOPAMAX [Concomitant]
     Active Substance: TOPIRAMATE
     Dosage: 100 MG, DAILY (AT BED TIME)
     Route: 048

REACTIONS (11)
  - Antipsychotic drug level increased [Unknown]
  - Illness [Unknown]
  - Gait disturbance [Unknown]
  - Urinary tract infection [Unknown]
  - Drug level increased [Recovered/Resolved]
  - Weight decreased [Unknown]
  - Product prescribing error [Unknown]
  - Product dispensing error [Unknown]
  - Weight increased [Unknown]
  - Blood potassium decreased [Recovered/Resolved]
  - Blood calcium increased [Unknown]

NARRATIVE: CASE EVENT DATE: 20190613
